FAERS Safety Report 4521743-5 (Version None)
Quarter: 2004Q4

REPORT INFORMATION
  Report Type: 
  Country: None (occurrence: None)
  Receive Date: 20041206
  Receipt Date: 20041122
  Transmission Date: 20050328
  Serious: Yes (Hospitalization)
  Sender: FDA-Public Use
  Company Number: FR-2004-025706

PATIENT
  Age: 84 Year
  Sex: Male

DRUGS (10)
  1. SOTALOL (SOTALOL HYDROCHLORIDE) TABLET [Suspect]
     Dosage: 80 MG, 1X/DAY, ORAL
     Route: 048
  2. ATHYMIL (MIANSERIN HYDROCHLORIDE) [Suspect]
     Indication: DEPRESSION
     Dosage: 30 MG, 1X/DAY, ORAL
     Route: 048
     Dates: start: 20040101
  3. DOLIPRANE (PARACETAMOL) EFFERVESCENT TABLET [Suspect]
     Dosage: 500 MG, 2X/DAY, ORAL
     Route: 048
  4. LASIX [Suspect]
     Dosage: 40 MG, 1X/DAY, ORAL
     Route: 046
  5. RAMIPRIL [Suspect]
     Dosage: 1.25 MG1X/DAY, ORAL
     Route: 048
  6. DECAPEPTYL - SLOW RELEASE (TRIPTORELIN ACETATE) [Suspect]
     Dosage: 3 MG, 1X/DAY, INTRAMUSCULAR
     Route: 030
  7. ASASANTIN (ACETYLSALICYLIC ACID, DIPYRIDAMOLE) [Concomitant]
  8. VASTAREL ^SERVIER^ (TRIMETAZIDINE HYDROCHLORIDE) [Concomitant]
  9. TRINIPATCH [Concomitant]
  10. SERETIDE DISKUS (SALMETEROL XINAFOATE, FLUTICASONE PROPIONATE) [Concomitant]

REACTIONS (7)
  - BLOOD FOLATE INCREASED [None]
  - BLOOD IRON DECREASED [None]
  - BLOOD LACTATE DEHYDROGENASE INCREASED [None]
  - GASTRIC POLYPS [None]
  - HAEMOLYTIC ANAEMIA [None]
  - HAPTOGLOBIN DECREASED [None]
  - VITAMIN B12 DECREASED [None]
